FAERS Safety Report 7738080-8 (Version None)
Quarter: 2011Q3

REPORT INFORMATION
  Report Type: 
  Country: None (occurrence: None)
  Receive Date: 20110908
  Receipt Date: 20110831
  Transmission Date: 20111222
  Serious: Yes (Other)
  Sender: FDA-Public Use
  Company Number: US-BAYER-201038364NA

PATIENT
  Age: 43 Year
  Sex: Female
  Weight: 126.98 kg

DRUGS (16)
  1. YAZ [Suspect]
     Indication: ACNE
     Dosage: UNK
  2. PERI-COLACE [Concomitant]
  3. YAZ [Suspect]
     Indication: CONTRACEPTION
  4. YASMIN [Suspect]
     Indication: CONTRACEPTION
  5. YASMIN [Suspect]
     Indication: MENORRHAGIA
  6. SYNTHROID [Concomitant]
     Dosage: 0.1 MG, QD
  7. ZESTRIL [Concomitant]
     Indication: BLOOD PRESSURE ABNORMAL
     Dosage: 20 MG, QD
  8. YAZ [Suspect]
     Indication: MENORRHAGIA
  9. YASMIN [Suspect]
     Indication: ACNE
     Dosage: UNK
     Dates: start: 20040101, end: 20050101
  10. GLUCOPHAGE [Concomitant]
     Dosage: 1000 MG, BID
  11. MAXZIDE [Concomitant]
     Indication: BLOOD PRESSURE ABNORMAL
     Dosage: 25 MG, QD
  12. FERROUS SULFATE TAB [Concomitant]
     Dosage: 325 MG, BID
  13. RIOMET [Concomitant]
     Dosage: 500 MG, UNK
     Route: 048
  14. FUMATINIC CAPS [Concomitant]
  15. LEVOTHROID [Concomitant]
     Dosage: 0.1 MG, QD
     Dates: start: 20050713
  16. PEPCID [Concomitant]
     Indication: ABDOMINAL PAIN UPPER
     Dosage: 20 MG, BID

REACTIONS (3)
  - INJURY [None]
  - CHOLECYSTITIS CHRONIC [None]
  - GALLBLADDER PAIN [None]
